FAERS Safety Report 7500460-3 (Version None)
Quarter: 2011Q2

REPORT INFORMATION
  Report Type: 
  Country: None (occurrence: None)
  Receive Date: 20110524
  Receipt Date: 20110404
  Transmission Date: 20111010
  Serious: No
  Sender: FDA-Public Use
  Company Number: US-BRISTOL-MYERS SQUIBB COMPANY-15652357

PATIENT

DRUGS (1)
  1. ONGLYZA [Suspect]

REACTIONS (1)
  - HYPERAESTHESIA [None]
